FAERS Safety Report 14423434 (Version 2)
Quarter: 2018Q3

REPORT INFORMATION
  Report Type: Spontaneous
  Country: US (occurrence: US)
  Receive Date: 20180123
  Receipt Date: 20180809
  Transmission Date: 20181010
  Serious: No
  Sender: FDA-Public Use
  Company Number: US-TEVA-810898ACC

PATIENT
  Age: 74 Year
  Sex: Female

DRUGS (11)
  1. PERMETHRIN. [Suspect]
     Active Substance: PERMETHRIN
     Indication: MITE ALLERGY
     Dosage: APPLY HEAD TO TOE AND LEAVE 8 HOURS
     Route: 061
     Dates: start: 20170918
  2. SINGULAIR [Concomitant]
     Active Substance: MONTELUKAST SODIUM
  3. CELEBREX [Concomitant]
     Active Substance: CELECOXIB
  4. PROTONIX [Concomitant]
     Active Substance: PANTOPRAZOLE SODIUM
  5. CALCIUM [Concomitant]
     Active Substance: CALCIUM
  6. BENADRYL [Concomitant]
     Active Substance: DIPHENHYDRAMINE HYDROCHLORIDE
     Indication: PRURITUS
  7. VITAMINS [Concomitant]
     Active Substance: VITAMINS
  8. WELLBUTRIN [Concomitant]
     Active Substance: BUPROPION HYDROCHLORIDE
  9. LISINOPRIL. [Concomitant]
     Active Substance: LISINOPRIL
     Indication: HYPERTENSION
  10. SINGULAIR [Concomitant]
     Active Substance: MONTELUKAST SODIUM
  11. FEXOFENADINE [Concomitant]
     Active Substance: FEXOFENADINE\FEXOFENADINE HYDROCHLORIDE

REACTIONS (4)
  - Burning sensation [Recovered/Resolved]
  - Burning sensation [Unknown]
  - Malaise [Unknown]
  - Nausea [Recovered/Resolved]

NARRATIVE: CASE EVENT DATE: 201709
